FAERS Safety Report 5229632-8 (Version None)
Quarter: 2007Q1

REPORT INFORMATION
  Report Type: 
  Country: None (occurrence: None)
  Receive Date: 20070205
  Receipt Date: 20070126
  Transmission Date: 20070707
  Serious: Yes (Hospitalization, Other)
  Sender: FDA-Public Use
  Company Number: DE-ABBOTT-06P-062-0340787-00

PATIENT
  Sex: Male

DRUGS (5)
  1. ERGENYL TABLETS [Suspect]
     Indication: PARTIAL SEIZURES
     Route: 048
     Dates: start: 20001001, end: 20040719
  2. ERGENYL TABLETS [Suspect]
     Indication: CYTOMEGALOVIRUS INFECTION
  3. VIGABATRIN [Concomitant]
     Indication: EPILEPSY
     Dosage: 1500 MG
     Route: 048
     Dates: start: 20010801
  4. CEFTAZIDINE [Concomitant]
     Indication: PNEUMONIA
  5. GENTAMICIN SULFATE [Concomitant]
     Indication: PNEUMONIA

REACTIONS (8)
  - COAGULATION FACTOR XIII LEVEL DECREASED [None]
  - COAGULOPATHY [None]
  - CONTUSION [None]
  - HAEMATOMA [None]
  - PETECHIAE [None]
  - PLATELET FUNCTION TEST ABNORMAL [None]
  - PNEUMONIA [None]
  - THROMBOCYTOPENIA [None]
